FAERS Safety Report 8518110 (Version 2)
Quarter: 2012Q4

REPORT INFORMATION
  Report Type: 
  Country: US (occurrence: US)
  Receive Date: 20120417
  Receipt Date: 20121105
  Transmission Date: 20130627
  Serious: No
  Sender: FDA-Public Use
  Company Number: US-ASTRAZENECA-2011SE59524

PATIENT
  Age: 83 Year
  Sex: Female

DRUGS (3)
  1. NEXIUM [Suspect]
     Route: 048
  2. BENEDRYL [Interacting]
     Route: 065
  3. DOXYCYCLINE [Concomitant]

REACTIONS (6)
  - Drug interaction [Unknown]
  - Nasopharyngitis [Unknown]
  - Gastrooesophageal reflux disease [Unknown]
  - Sinusitis [Unknown]
  - Malaise [Unknown]
  - Off label use [Unknown]
